FAERS Safety Report 11686515 (Version 1)
Quarter: 2015Q4

REPORT INFORMATION
  Report Type: Spontaneous
  Country: US (occurrence: US)
  Receive Date: 20151030
  Receipt Date: 20151030
  Transmission Date: 20160304
  Serious: No
  Sender: FDA-Public Use
  Company Number: PHEH2015US021802

PATIENT
  Sex: Female

DRUGS (1)
  1. TYKERB [Suspect]
     Active Substance: LAPATINIB DITOSYLATE
     Indication: BREAST CANCER
     Dosage: 250 MG, QD (5 TABLETS BY MOUTH)
     Route: 048

REACTIONS (4)
  - Feeding disorder [Unknown]
  - Hypoaesthesia [Unknown]
  - Weight decreased [Unknown]
  - Malaise [Unknown]
